FAERS Safety Report 10048921 (Version 1)
Quarter: 2014Q1

REPORT INFORMATION
  Report Type: Report from Study
  Country: US (occurrence: US)
  Receive Date: 20140331
  Receipt Date: 20140331
  Transmission Date: 20141002
  Serious: Yes (Other)
  Sender: FDA-Public Use
  Company Number: US-ABBVIE-14K-163-1213541-00

PATIENT
  Age: 54 Year
  Sex: Female

DRUGS (15)
  1. HUMIRA [Suspect]
     Indication: COLITIS ULCERATIVE
     Dates: start: 20131217
  2. NOVOLOG [Concomitant]
     Indication: DIABETES MELLITUS
     Dosage: SLIDING SCALE INSULIN
  3. LANTUS [Concomitant]
     Indication: DIABETES MELLITUS
     Dosage: IN THE MORNING AND AT NIGHT
  4. GLUCOPHAGE [Concomitant]
     Indication: DIABETES MELLITUS
  5. WELLBUTRIN [Concomitant]
     Indication: PAIN
  6. WELLBUTRIN [Concomitant]
     Indication: DEPRESSION
  7. COREG [Concomitant]
     Indication: PROPHYLAXIS
  8. VITAMIN B12 [Concomitant]
     Indication: VITAMIN SUPPLEMENTATION
  9. FOLIC ACID [Concomitant]
     Indication: RED BLOOD CELL COUNT
  10. LASIX [Concomitant]
     Indication: FLUID RETENTION
  11. FIZAR [Concomitant]
     Indication: HYPERTENSION
     Dosage: 100/25 MG
  12. PRILOSEC [Concomitant]
     Indication: HAEMORRHAGE
  13. VITAMIN B6 [Concomitant]
     Indication: MUSCLE SPASMS
  14. VITAMIN B6 [Concomitant]
     Indication: PAIN
  15. VITAMIN D [Concomitant]
     Indication: VITAMIN SUPPLEMENTATION

REACTIONS (4)
  - Bone marrow failure [Unknown]
  - Wrong technique in drug usage process [Unknown]
  - Incorrect dose administered [Unknown]
  - Injection site pain [Not Recovered/Not Resolved]
